FAERS Safety Report 9209410 (Version 1)
Quarter: 2013Q1

REPORT INFORMATION
  Report Type: Spontaneous
  Country: US (occurrence: None)
  Receive Date: 20120725
  Receipt Date: 20120725
  Transmission Date: 20140127
  Serious: Yes (Hospitalization)
  Sender: FDA-Public Use
  Company Number: 2011SP058602

PATIENT
  Sex: 0

DRUGS (2)
  1. RIBAVARIN [Suspect]
     Indication: PRODUCT USED FOR UNKNOWN INDICATION
  2. INCIVEK [Suspect]
     Indication: PRODUCT USED FOR UNKNOWN INDICATION

REACTIONS (1)
  - Anaemia [None]
